FAERS Safety Report 14167517 (Version 1)
Quarter: 2017Q4

REPORT INFORMATION
  Report Type: Report from Study
  Country: US (occurrence: US)
  Receive Date: 20171107
  Receipt Date: 20171107
  Transmission Date: 20180321
  Serious: Yes (Hospitalization)
  Sender: FDA-Public Use
  Company Number: US-BAUSCH-BL-2017-027683

PATIENT
  Age: 9 Year
  Sex: Female

DRUGS (1)
  1. XENAZINE [Suspect]
     Active Substance: TETRABENAZINE
     Indication: CHOREA
     Route: 065
     Dates: start: 2017, end: 201710

REACTIONS (1)
  - Bedridden [Recovered/Resolved]

NARRATIVE: CASE EVENT DATE: 201710
